FAERS Safety Report 12711662 (Version 1)
Quarter: 2016Q3

REPORT INFORMATION
  Report Type: Report from Study
  Country: US (occurrence: US)
  Receive Date: 20160902
  Receipt Date: 20160902
  Transmission Date: 20161109
  Serious: No
  Sender: FDA-Public Use
  Company Number: PHEH2016US022262

PATIENT
  Age: 58 Year
  Sex: Female

DRUGS (2)
  1. GILENYA [Suspect]
     Active Substance: FINGOLIMOD HYDROCHLORIDE
     Indication: MULTIPLE SCLEROSIS
     Dosage: UNK, QD
     Route: 048
     Dates: start: 20130123
  2. GILENYA [Suspect]
     Active Substance: FINGOLIMOD HYDROCHLORIDE
     Dosage: 1 MG (TOOK ONE IN MORNING AND ONE EVENING)
     Route: 048
     Dates: start: 20160831, end: 20160831

REACTIONS (1)
  - Accidental overdose [Unknown]

NARRATIVE: CASE EVENT DATE: 20160831
